FAERS Safety Report 9919946 (Version 1)
Quarter: 2014Q1

REPORT INFORMATION
  Report Type: Report from Study
  Country: US (occurrence: US)
  Receive Date: 20140224
  Receipt Date: 20140224
  Transmission Date: 20141002
  Serious: Yes (Death)
  Sender: FDA-Public Use
  Company Number: PHEH2014US003531

PATIENT
  Age: 49 Year
  Sex: Male

DRUGS (1)
  1. MYFORTIC [Suspect]
     Indication: LIVER TRANSPLANT
     Dosage: 360 MG, BID
     Route: 048

REACTIONS (1)
  - Death [Fatal]
